FAERS Safety Report 7531211-4 (Version None)
Quarter: 2011Q2

REPORT INFORMATION
  Report Type: 
  Country: None (occurrence: None)
  Receive Date: 20110608
  Receipt Date: 20110602
  Transmission Date: 20111010
  Serious: Yes (Life-Threatening)
  Sender: FDA-Public Use
  Company Number: GB-ASTRAZENECA-2011SE33849

PATIENT
  Age: 42 Year
  Sex: Male
  Weight: 102 kg

DRUGS (6)
  1. SANDO-K [Concomitant]
     Route: 048
     Dates: start: 20110421
  2. MULTI-VITAMIN [Concomitant]
     Route: 048
     Dates: start: 20110421
  3. THIAMINE [Concomitant]
     Route: 048
     Dates: start: 20110421
  4. OMEPRAZOLE [Suspect]
     Route: 048
     Dates: start: 20110421, end: 20110517
  5. LACTULOSE [Concomitant]
     Route: 048
     Dates: start: 20110421
  6. VITAMIN B COMPLEX STRONG [Concomitant]
     Route: 048
     Dates: start: 20110421

REACTIONS (6)
  - CONFUSIONAL STATE [None]
  - RENAL FAILURE [None]
  - DRUG RASH WITH EOSINOPHILIA AND SYSTEMIC SYMPTOMS [None]
  - EOSINOPHILIA [None]
  - LYMPHOPENIA [None]
  - VASCULITIC RASH [None]
